FAERS Safety Report 6022312-0 (Version None)
Quarter: 2008Q4

REPORT INFORMATION
  Report Type: 
  Country: None (occurrence: None)
  Receive Date: 20081221
  Receipt Date: 20081221
  Transmission Date: 20090506
  Serious: Yes (Life-Threatening, Other)
  Sender: FDA-Public Use
  Company Number: None

PATIENT
  Age: 51 Year
  Sex: Female
  Weight: 71.6683 kg

DRUGS (1)
  1. ACETASOL HC [Suspect]
     Indication: HYPERSENSITIVITY
     Dosage: ONE DROP ONCE OTIC
     Route: 001
     Dates: start: 20081217, end: 20081217

REACTIONS (6)
  - BURNING SENSATION [None]
  - EYE SWELLING [None]
  - OCULAR HYPERAEMIA [None]
  - PAIN [None]
  - PRURITUS GENERALISED [None]
  - URTICARIA [None]
